FAERS Safety Report 23286119 (Version 1)
Quarter: 2023Q4

REPORT INFORMATION
  Report Type: Spontaneous
  Country: JP (occurrence: JP)
  Receive Date: 20231212
  Receipt Date: 20231212
  Transmission Date: 20240110
  Serious: Yes (Hospitalization, Other)
  Sender: FDA-Public Use
  Company Number: JP-CLGN-JP-CLI-2023-043425

PATIENT
  Age: 74 Year
  Sex: Female

DRUGS (1)
  1. HYDROXYUREA [Suspect]
     Active Substance: HYDROXYUREA
     Indication: Polycythaemia vera
     Dosage: DAILY DOSE: 500 MILLIGRAM
     Route: 048

REACTIONS (1)
  - Peptic ulcer [Recovering/Resolving]
